FAERS Safety Report 5502548-5 (Version None)
Quarter: 2007Q4

REPORT INFORMATION
  Report Type: 
  Country: None (occurrence: None)
  Receive Date: 20071030
  Receipt Date: 20071026
  Transmission Date: 20080405
  Serious: No
  Sender: FDA-Public Use
  Company Number: US-BOEHRINGER INGELHEIM PHARMACEUTICALS, INC.-2007-BP-21123BP

PATIENT
  Sex: Male

DRUGS (11)
  1. SPIRIVA [Suspect]
     Indication: LUNG LOBECTOMY
     Route: 055
     Dates: start: 20070101
  2. DIGITEK [Concomitant]
  3. METOPROLOL [Concomitant]
  4. FUROSEMIDE [Concomitant]
  5. POTASSIUM CHLORIDE [Concomitant]
  6. PREDNISONE [Concomitant]
     Indication: ARTHRITIS
  7. FLOMAX [Concomitant]
  8. AVODART [Concomitant]
     Indication: BENIGN PROSTATIC HYPERPLASIA
  9. WARFARIN SODIUM [Concomitant]
     Dates: end: 20070901
  10. CRESTOR [Concomitant]
     Indication: BLOOD CHOLESTEROL INCREASED
  11. PULMICORT [Concomitant]

REACTIONS (3)
  - BLOOD URINE PRESENT [None]
  - DRUG INEFFECTIVE [None]
  - PROSTATE INFECTION [None]
